FAERS Safety Report 6174193-2 (Version None)
Quarter: 2009Q2

REPORT INFORMATION
  Report Type: 
  Country: None (occurrence: None)
  Receive Date: 20090430
  Receipt Date: 20080403
  Transmission Date: 20091009
  Serious: No
  Sender: FDA-Public Use
  Company Number: US-ASTRAZENECA-2008UW06749

PATIENT
  Age: 63 Year
  Sex: Female
  Weight: 65.3 kg

DRUGS (2)
  1. NEXIUM [Suspect]
     Indication: BARRETT'S OESOPHAGUS
     Route: 048
     Dates: start: 20070101
  2. ZOLOFT [Concomitant]
     Route: 048

REACTIONS (1)
  - ARTHRALGIA [None]
